FAERS Safety Report 5682866-0 (Version None)
Quarter: 2008Q1

REPORT INFORMATION
  Report Type: 
  Country: None (occurrence: None)
  Receive Date: 20080327
  Receipt Date: 20080320
  Transmission Date: 20080703
  Serious: Yes (Disabling)
  Sender: FDA-Public Use
  Company Number: B0513296A

PATIENT
  Age: 20 Year
  Sex: Female

DRUGS (5)
  1. LAMOTRIGINE [Suspect]
     Indication: EPILEPSY
     Dosage: 25MG PER DAY
     Route: 048
  2. LAMOTRIGINE [Suspect]
     Dosage: 50MG PER DAY
     Route: 048
     Dates: start: 20080126, end: 20080214
  3. EPILIM [Concomitant]
     Indication: EPILEPSY
     Dosage: 1800MG PER DAY
     Route: 048
  4. CLONAZEPAM [Concomitant]
     Indication: EPILEPSY
     Dosage: 9MG PER DAY
     Route: 048
  5. METHYLPHENIDATE HCL [Concomitant]
     Dosage: 2.5MG PER DAY
     Route: 048

REACTIONS (6)
  - CATATONIA [None]
  - DROOLING [None]
  - FEELING ABNORMAL [None]
  - MOVEMENT DISORDER [None]
  - SLEEP DISORDER [None]
  - SPEECH DISORDER [None]
